FAERS Safety Report 8764845 (Version 2)
Quarter: 2013Q4

REPORT INFORMATION
  Report Type: Spontaneous
  Country: US (occurrence: US)
  Receive Date: 20120901
  Receipt Date: 20131101
  Transmission Date: 20140711
  Serious: No
  Sender: FDA-Public Use
  Company Number: US-009507513-1208USA010747

PATIENT
  Age: 22 Year
  Sex: Female

DRUGS (3)
  1. IMPLANON [Suspect]
     Indication: CONTRACEPTION
     Dosage: UNK
     Route: 059
     Dates: start: 20120711
  2. ZOLOFT [Concomitant]
  3. IRON (UNSPECIFIED) [Concomitant]

REACTIONS (1)
  - Pruritus [Recovering/Resolving]
